FAERS Safety Report 10786986 (Version 2)
Quarter: 2015Q2

REPORT INFORMATION
  Report Type: Spontaneous
  Country: US (occurrence: US)
  Receive Date: 20150211
  Receipt Date: 20150515
  Transmission Date: 20150821
  Serious: Yes (Other)
  Sender: FDA-Public Use
  Company Number: US-TEVA-540182USA

PATIENT
  Age: 28 Year
  Sex: Female
  Weight: 84.9 kg

DRUGS (2)
  1. PARAGARD T 380A [Suspect]
     Active Substance: COPPER
     Indication: CONTRACEPTION
     Route: 015
     Dates: start: 20141105, end: 20150107
  2. PARAGARD T 380A [Suspect]
     Active Substance: COPPER
     Route: 015
     Dates: start: 20150107, end: 20150127

REACTIONS (14)
  - Uterine leiomyoma [Unknown]
  - Vomiting [Unknown]
  - Vaginal odour [Recovered/Resolved]
  - Vulvovaginitis [Unknown]
  - Pollakiuria [Unknown]
  - Cervix inflammation [Unknown]
  - Vulvovaginal candidiasis [Recovered/Resolved]
  - Haemorrhoids [Unknown]
  - Vaginal haemorrhage [Recovered/Resolved]
  - Device dislocation [Recovered/Resolved]
  - Urinary tract infection [Recovered/Resolved]
  - Vaginal infection [Unknown]
  - Back pain [Unknown]
  - Nausea [Unknown]

NARRATIVE: CASE EVENT DATE: 20141105
